FAERS Safety Report 5626572-7 (Version None)
Quarter: 2008Q1

REPORT INFORMATION
  Report Type: 
  Country: None (occurrence: None)
  Receive Date: 20080212
  Receipt Date: 20080201
  Transmission Date: 20080703
  Serious: Yes (Hospitalization, Other)
  Sender: FDA-Public Use
  Company Number: 2008002970

PATIENT
  Age: 14 Year
  Sex: Male

DRUGS (2)
  1. BENADRYL [Suspect]
     Indication: ARTHROPOD BITE
     Dosage: 1 TABLET, ORAL
     Route: 048
     Dates: start: 20050912, end: 20050912
  2. BENADRYL [Suspect]
     Indication: ARTHROPOD BITE
     Dosage: UNSPECIFIED AMOUNT, TOPICAL
     Route: 061
     Dates: start: 20050912, end: 20050912

REACTIONS (1)
  - CONVULSION [None]
